FAERS Safety Report 7085219-6 (Version None)
Quarter: 2010Q4

REPORT INFORMATION
  Report Type: 
  Country: None (occurrence: None)
  Receive Date: 20101028
  Receipt Date: 20101018
  Transmission Date: 20110411
  Serious: Yes (Other)
  Sender: FDA-Public Use
  Company Number: JHP201000327

PATIENT
  Age: 23 Year
  Sex: Female

DRUGS (1)
  1. KETALAR [Suspect]
     Indication: DRUG ABUSE
     Dosage: 1 PACKET TO A PACKET AND A HALF, INHALATION
     Route: 055

REACTIONS (1)
  - CYSTITIS INTERSTITIAL [None]
